FAERS Safety Report 6262870-4 (Version None)
Quarter: 2009Q3

REPORT INFORMATION
  Report Type: 
  Country: None (occurrence: None)
  Receive Date: 20090709
  Receipt Date: 20090703
  Transmission Date: 20100115
  Serious: Yes (Other)
  Sender: FDA-Public Use
  Company Number: FR-AMGEN-US353089

PATIENT
  Sex: Female
  Weight: 60 kg

DRUGS (7)
  1. ENBREL [Suspect]
     Indication: RHEUMATOID ARTHRITIS
     Route: 058
     Dates: start: 20080922
  2. SPECIAFOLDINE [Concomitant]
     Dosage: 2 TABLETS TOTAL WEEKLY
     Route: 048
     Dates: start: 20050101
  3. DI-ANTALVIC [Concomitant]
     Dosage: 2 TO 6 CAPSULES TOTAL DAILY
     Route: 048
     Dates: start: 20080922
  4. NEXEN [Concomitant]
     Route: 048
     Dates: start: 20080922
  5. LANSOPRAZOLE [Concomitant]
     Dosage: 15 MG TOTAL DAILY
     Route: 048
     Dates: start: 20080922
  6. NOVATREX [Concomitant]
     Dosage: 10 MG TOTAL WEEKLY
     Route: 048
     Dates: start: 20050101
  7. CORTANCYL [Concomitant]
     Dosage: 3 MG TOTAL DAILY
     Route: 048
     Dates: start: 20050101

REACTIONS (2)
  - HYPOAESTHESIA [None]
  - PARAESTHESIA [None]
